FAERS Safety Report 8771691 (Version 5)
Quarter: 2016Q3

REPORT INFORMATION
  Report Type: Spontaneous
  Country: US (occurrence: US)
  Receive Date: 20120906
  Receipt Date: 20160810
  Transmission Date: 20161109
  Serious: Yes (Hospitalization, Other)
  Sender: FDA-Public Use
  Company Number: US-009507513-1112USA02422

PATIENT
  Sex: Female
  Weight: 81.63 kg

DRUGS (7)
  1. ATENOLOL. [Concomitant]
     Active Substance: ATENOLOL
     Indication: HYPERTENSION
     Route: 065
  2. FOSAMAX [Suspect]
     Active Substance: ALENDRONATE SODIUM
     Indication: OSTEOPOROSIS
     Dosage: 35 MG, QW
     Route: 048
     Dates: start: 20060104, end: 2009
  3. NORVASC [Concomitant]
     Active Substance: AMLODIPINE BESYLATE
     Indication: HYPERTENSION
     Route: 065
  4. HYDROCHLOROTHIAZIDE. [Concomitant]
     Active Substance: HYDROCHLOROTHIAZIDE
     Indication: HYPERTENSION
     Route: 065
  5. FOSAMAX [Suspect]
     Active Substance: ALENDRONATE SODIUM
     Dosage: 70 MG, QW
     Route: 048
     Dates: end: 2009
  6. ALENDRONATE SODIUM. [Suspect]
     Active Substance: ALENDRONATE SODIUM
     Indication: OSTEOPOROSIS
     Dosage: 35 MG, QW
     Route: 048
     Dates: start: 20080204
  7. ALENDRONATE SODIUM. [Suspect]
     Active Substance: ALENDRONATE SODIUM
     Dosage: 70 MG, QW
     Route: 048
     Dates: start: 20100503

REACTIONS (58)
  - Ankle fracture [Unknown]
  - Open reduction of fracture [Unknown]
  - Anaemia [Unknown]
  - Metastatic neoplasm [Unknown]
  - Arthropathy [Unknown]
  - Osteopenia [Unknown]
  - Fall [Unknown]
  - Arthralgia [Recovering/Resolving]
  - Pneumonia [Unknown]
  - Myeloproliferative neoplasm [Recovering/Resolving]
  - Bone graft [Unknown]
  - Cataract operation [Unknown]
  - Fall [Unknown]
  - Glaucoma [Unknown]
  - Lumbar spinal stenosis [Unknown]
  - Oedema peripheral [Unknown]
  - Chronic kidney disease [Not Recovered/Not Resolved]
  - Compression fracture [Unknown]
  - Muscle spasms [Unknown]
  - Pulmonary hypertension [Recovering/Resolving]
  - Iron deficiency anaemia [Unknown]
  - Renal failure [Unknown]
  - Oedema peripheral [Recovering/Resolving]
  - Incision site haematoma [Unknown]
  - Osteoarthritis [Unknown]
  - Skin exfoliation [Unknown]
  - Cardiac failure congestive [Unknown]
  - Knee arthroplasty [Unknown]
  - Open reduction of fracture [Unknown]
  - Hip fracture [Unknown]
  - Femur fracture [Unknown]
  - Back pain [Unknown]
  - Iron deficiency [Unknown]
  - Incision site haemorrhage [Unknown]
  - Transient ischaemic attack [Unknown]
  - Intervertebral disc degeneration [Unknown]
  - Hypertension [Unknown]
  - Arthralgia [Unknown]
  - Cardiac murmur [Unknown]
  - Hypothyroidism [Unknown]
  - Neuropathy peripheral [Unknown]
  - Depression [Unknown]
  - Asthenia [Unknown]
  - Gastrooesophageal reflux disease [Unknown]
  - Type 2 diabetes mellitus [Unknown]
  - Overdose [Unknown]
  - Loss of anatomical alignment after fracture reduction [Unknown]
  - Pain [Unknown]
  - Spondylolisthesis [Unknown]
  - Thrombocytosis [Recovering/Resolving]
  - Polycythaemia vera [Recovering/Resolving]
  - Hypertension [Recovering/Resolving]
  - Polycythaemia [Unknown]
  - Anxiety [Unknown]
  - Hyperlipidaemia [Unknown]
  - Fractured sacrum [Unknown]
  - Cardiomegaly [Unknown]
  - Back pain [Unknown]

NARRATIVE: CASE EVENT DATE: 2002
